FAERS Safety Report 9774919 (Version 1)
Quarter: 2013Q4

REPORT INFORMATION
  Report Type: Spontaneous
  Country: US (occurrence: US)
  Receive Date: 20131220
  Receipt Date: 20131220
  Transmission Date: 20140711
  Serious: No
  Sender: FDA-Public Use
  Company Number: US-009507513-1312USA008131

PATIENT
  Sex: Male

DRUGS (5)
  1. COSOPT PF [Suspect]
     Indication: NORMAL TENSION GLAUCOMA
     Dosage: UNK
     Route: 047
     Dates: start: 2013, end: 2013
  2. COSOPT PF [Suspect]
     Dosage: 2 GTT, Q12H, ONE DROP IN EACH EYE EVERY 12 HOURS, COUPLE OF WEEKS AGO
     Route: 047
     Dates: start: 201312, end: 201312
  3. COSOPT PF [Suspect]
     Dosage: ONE DROP IN EACH EYE EVERY 12 HOURS
     Route: 047
     Dates: start: 20131217
  4. COSOPT [Suspect]
     Route: 047
  5. ZIOPTAN [Concomitant]

REACTIONS (7)
  - Eye swelling [Not Recovered/Not Resolved]
  - Eyelid oedema [Not Recovered/Not Resolved]
  - Eye irritation [Not Recovered/Not Resolved]
  - Eye irritation [Not Recovered/Not Resolved]
  - Lacrimation increased [Not Recovered/Not Resolved]
  - Eyelid irritation [Unknown]
  - Eye pruritus [Unknown]
